FAERS Safety Report 21420588 (Version 1)
Quarter: 2022Q4

REPORT INFORMATION
  Report Type: Report from Study
  Country: JP (occurrence: JP)
  Receive Date: 20221007
  Receipt Date: 20221007
  Transmission Date: 20230113
  Serious: Yes (Hospitalization)
  Sender: FDA-Public Use
  Company Number: JP-BAYER-2016-197357

PATIENT
  Age: 20 Year
  Sex: Female
  Weight: 48.1 kg

DRUGS (16)
  1. VENTAVIS [Suspect]
     Active Substance: ILOPROST
     Indication: Pulmonary arterial hypertension
     Dosage: 2.5 UG, 6ID
     Route: 055
     Dates: start: 20160609, end: 20160703
  2. VENTAVIS [Suspect]
     Active Substance: ILOPROST
     Indication: Pulmonary arterial hypertension
     Dosage: 5 UG, 6ID
     Route: 055
     Dates: start: 20160704, end: 20160726
  3. VENTAVIS [Suspect]
     Active Substance: ILOPROST
     Indication: Pulmonary arterial hypertension
     Dosage: 5 UG, 9ID
     Route: 055
     Dates: start: 20160727, end: 20161221
  4. VENTAVIS [Suspect]
     Active Substance: ILOPROST
     Indication: Pulmonary arterial hypertension
     Dosage: 5 UG, 6ID
     Route: 055
     Dates: start: 20161222, end: 20170130
  5. VENTAVIS [Suspect]
     Active Substance: ILOPROST
     Indication: Pulmonary arterial hypertension
     Dosage: 2.5 UG, 6ID
     Route: 055
     Dates: start: 20170131
  6. VENTAVIS [Suspect]
     Active Substance: ILOPROST
     Indication: Pulmonary arterial hypertension
     Dosage: 2.5 UG, 5ID
     Route: 055
  7. VENTAVIS [Suspect]
     Active Substance: ILOPROST
     Indication: Pulmonary arterial hypertension
     Dosage: 2.5 UG, TID
     Route: 055
  8. PENTASA [Suspect]
     Active Substance: MESALAMINE
     Indication: Colitis ulcerative
     Dosage: DAILY DOSE 2 G
     Route: 048
     Dates: start: 20160923, end: 20161018
  9. HUMIRA [Suspect]
     Active Substance: ADALIMUMAB
     Indication: Haematochezia
     Dosage: 40 TO 160MG
     Route: 042
     Dates: start: 20170303
  10. ASACOL [Suspect]
     Active Substance: MESALAMINE
     Dosage: DAILY DOSE 1200 MG
     Dates: start: 20161116, end: 20170110
  11. OPSUMIT [Concomitant]
     Active Substance: MACITENTAN
     Indication: Pulmonary arterial hypertension
     Dosage: DAILY DOSE 10 MG
     Route: 048
     Dates: start: 20160415
  12. ADCIRCA [Concomitant]
     Active Substance: TADALAFIL
     Indication: Pulmonary arterial hypertension
     Dosage: DAILY DOSE 40 MG
     Route: 048
     Dates: start: 20160426
  13. AZOSEMIDE [Concomitant]
     Active Substance: AZOSEMIDE
     Dosage: DAILY DOSE 30 MG
     Route: 048
     Dates: end: 20170131
  14. LANSOPRAZOLE [Concomitant]
     Active Substance: LANSOPRAZOLE
     Indication: Prophylaxis
     Dosage: DAILY DOSE 15 MG
     Route: 048
     Dates: end: 20161019
  15. PREDONINE [Concomitant]
     Active Substance: PREDNISOLONE
     Dosage: 2.5 TO40MG
     Route: 048
     Dates: start: 20161202
  16. DOMPERIDONE [Concomitant]
     Active Substance: DOMPERIDONE
     Indication: Nausea

REACTIONS (13)
  - Pancreatitis acute [Recovered/Resolved]
  - Pancreatitis [Recovered/Resolved]
  - Flushing [Recovered/Resolved]
  - Dysmenorrhoea [Not Recovered/Not Resolved]
  - Abdominal pain upper [Recovered/Resolved]
  - Back pain [Recovered/Resolved]
  - Haematochezia [Recovered/Resolved]
  - Hypoaesthesia [Recovered/Resolved]
  - Iron deficiency anaemia [Recovered/Resolved]
  - Diarrhoea [Recovered/Resolved]
  - Blood loss anaemia [Recovered/Resolved]
  - Haematochezia [Recovered/Resolved]
  - Haematochezia [Recovered/Resolved]

NARRATIVE: CASE EVENT DATE: 20160719
